FAERS Safety Report 4613253-1 (Version None)
Quarter: 2005Q1

REPORT INFORMATION
  Report Type: 
  Country: None (occurrence: None)
  Receive Date: 20050315
  Receipt Date: 20050224
  Transmission Date: 20050727
  Serious: Yes (Other)
  Sender: FDA-Public Use
  Company Number: EWC050342909

PATIENT
  Age: 32 Year
  Sex: Male
  Weight: 84 kg

DRUGS (2)
  1. GEMZAR [Suspect]
     Indication: NON-SMALL CELL LUNG CANCER
     Dosage: 2200 MG OTHER
     Dates: start: 20040301, end: 20040307
  2. CISPLATIN [Concomitant]

REACTIONS (1)
  - PNEUMOTHORAX [None]
